FAERS Safety Report 7219275-9 (Version None)
Quarter: 2011Q1

REPORT INFORMATION
  Report Type: 
  Country: None (occurrence: None)
  Receive Date: 20110111
  Receipt Date: 20110103
  Transmission Date: 20110831
  Serious: Yes (Other)
  Sender: FDA-Public Use
  Company Number: US-PFIZER INC-2010153681

PATIENT
  Sex: Male
  Weight: 66 kg

DRUGS (3)
  1. NORCO [Concomitant]
     Dosage: 10/325
  2. PRISTIQ [Suspect]
     Indication: DEPRESSION
     Dosage: 50 MG, 1X/DAY
     Route: 048
     Dates: start: 20101102, end: 20101105
  3. BACLOFEN [Concomitant]
     Dosage: 10 MG, 2X/DAY

REACTIONS (2)
  - BLOOD PRESSURE INCREASED [None]
  - PRESYNCOPE [None]
